FAERS Safety Report 8180438-X (Version None)
Quarter: 2012Q1

REPORT INFORMATION
  Report Type: 
  Country: None (occurrence: None)
  Receive Date: 20120302
  Receipt Date: 20120227
  Transmission Date: 20120608
  Serious: Yes (Death)
  Sender: FDA-Public Use
  Company Number: US-PFIZER INC-2012055019

PATIENT
  Sex: Female

DRUGS (3)
  1. SUTENT [Suspect]
     Indication: HEPATIC NEOPLASM
  2. SUTENT [Suspect]
     Indication: BONE NEOPLASM MALIGNANT
  3. SUTENT [Suspect]
     Indication: BRAIN NEOPLASM
     Dosage: 50 MG, UNK
     Dates: start: 20111111

REACTIONS (1)
  - DEATH [None]
